FAERS Safety Report 16693246 (Version 1)
Quarter: 2019Q4

REPORT INFORMATION
  Report Type: Spontaneous
  Country: US (occurrence: US)
  Receive Date: 20190811
  Receipt Date: 20190811
  Transmission Date: 20200122
  Serious: No
  Sender: FDA-Public Use
  Company Number: None

PATIENT
  Age: 31 Year
  Sex: Female

DRUGS (2)
  1. BUPROPION XL [Suspect]
     Active Substance: BUPROPION
     Indication: MAJOR DEPRESSION
     Route: 048
  2. BUPROPION XL [Concomitant]
     Active Substance: BUPROPION
     Dates: start: 20170501, end: 20180620

REACTIONS (2)
  - Galactorrhoea [None]
  - Trismus [None]
